FAERS Safety Report 5241043-8 (Version None)
Quarter: 2007Q1

REPORT INFORMATION
  Report Type: 
  Country: None (occurrence: None)
  Receive Date: 20070213
  Receipt Date: 20070213
  Transmission Date: 20070707
  Serious: No
  Sender: FDA-Public Use
  Company Number: None

PATIENT
  Sex: Male
  Weight: 119.296 kg

DRUGS (1)
  1. DARVOCET-N 100 [Suspect]
     Dosage: 100 - 650 MG 1 TAB Q4

REACTIONS (1)
  - DRUG INEFFECTIVE [None]
